FAERS Safety Report 8510347-5 (Version None)
Quarter: 2012Q3

REPORT INFORMATION
  Report Type: 
  Country: None (occurrence: None)
  Receive Date: 20120713
  Receipt Date: 20120709
  Transmission Date: 20120928
  Serious: Yes (Other)
  Sender: FDA-Public Use
  Company Number: US-PFIZER INC-2012164891

PATIENT
  Sex: Female
  Weight: 81.633 kg

DRUGS (2)
  1. ZOLOFT [Suspect]
     Indication: DEPRESSION
     Dosage: UNK
  2. NORPLANT [Suspect]
     Indication: CONTRACEPTION
     Dosage: UNK
     Dates: start: 19910101

REACTIONS (12)
  - WEIGHT INCREASED [None]
  - ANAEMIA [None]
  - ACNE [None]
  - SCAR [None]
  - MUSCULOSKELETAL STIFFNESS [None]
  - UNINTENDED PREGNANCY [None]
  - MENORRHAGIA [None]
  - PAIN IN EXTREMITY [None]
  - DRUG INEFFECTIVE [None]
  - JOINT RANGE OF MOTION DECREASED [None]
  - FEELING ABNORMAL [None]
  - MIGRAINE [None]
